FAERS Safety Report 5911304-5 (Version None)
Quarter: 2008Q4

REPORT INFORMATION
  Report Type: 
  Country: None (occurrence: None)
  Receive Date: 20081007
  Receipt Date: 20080928
  Transmission Date: 20090506
  Serious: Yes (Hospitalization)
  Sender: FDA-Public Use
  Company Number: TR-B.I. PHARMACEUTICALS,INC./RIDGEFIELD-2008-DE-05787TK

PATIENT
  Age: 20 Year
  Sex: Female

DRUGS (1)
  1. MICARDIS HCT [Suspect]
     Dosage: 1600MG
     Route: 048
     Dates: start: 20080928, end: 20080928

REACTIONS (1)
  - SUICIDE ATTEMPT [None]
